FAERS Safety Report 25650198 (Version 1)
Quarter: 2025Q3

REPORT INFORMATION
  Report Type: Spontaneous
  Country: US (occurrence: US)
  Receive Date: 20250806
  Receipt Date: 20250806
  Transmission Date: 20251021
  Serious: Yes (Other)
  Sender: NOVO NORDISK
  Company Number: US-NOVOPROD-1492130

PATIENT
  Sex: Female

DRUGS (1)
  1. SAXENDA [Suspect]
     Active Substance: LIRAGLUTIDE
     Indication: Weight control

REACTIONS (5)
  - Loss of consciousness [Recovered/Resolved]
  - Colitis ulcerative [Not Recovered/Not Resolved]
  - Dehydration [Unknown]
  - Heart rate increased [Unknown]
  - Abnormal loss of weight [Unknown]
